FAERS Safety Report 10447348 (Version 3)
Quarter: 2015Q1

REPORT INFORMATION
  Report Type: Report from Study
  Country: NL (occurrence: NL)
  Receive Date: 20140911
  Receipt Date: 20150109
  Transmission Date: 20150720
  Serious: Yes (Hospitalization)
  Sender: FDA-Public Use
  Company Number: NL-SA-2014SA106982

PATIENT
  Age: 6 Year
  Sex: Male
  Weight: 19.9 kg

DRUGS (2)
  1. FILGRASTIM [Concomitant]
     Active Substance: FILGRASTIM
     Dates: start: 20140808, end: 20140810
  2. PLERIXAFOR [Suspect]
     Active Substance: PLERIXAFOR
     Indication: NEUROBLASTOMA
     Route: 065
     Dates: start: 20140724

REACTIONS (2)
  - Pulmonary embolism [Recovering/Resolving]
  - Enterobacter infection [Recovered/Resolved]

NARRATIVE: CASE EVENT DATE: 20140806
